FAERS Safety Report 21137210 (Version 1)
Quarter: 2022Q3

REPORT INFORMATION
  Report Type: Spontaneous
  Country: US (occurrence: US)
  Receive Date: 20220727
  Receipt Date: 20220727
  Transmission Date: 20221027
  Serious: No
  Sender: FDA-Public Use
  Company Number: US-CORDEN PHARMA LATINA S.P.A.-US-2022COR000002

PATIENT

DRUGS (4)
  1. GLEOSTINE [Suspect]
     Active Substance: LOMUSTINE
     Indication: Product used for unknown indication
     Dosage: 1ST CYCLE
  2. GLEOSTINE [Suspect]
     Active Substance: LOMUSTINE
     Dosage: 2ND CYCLE
  3. GLEOSTINE [Suspect]
     Active Substance: LOMUSTINE
     Dosage: 3RD CYCLE
  4. GLEOSTINE [Suspect]
     Active Substance: LOMUSTINE
     Dosage: 140 MILLIGRAM, AT BED TIME
     Route: 048

REACTIONS (1)
  - Fatigue [Unknown]
